FAERS Safety Report 7157526-X (Version None)
Quarter: 2010Q4

REPORT INFORMATION
  Report Type: 
  Country: None (occurrence: None)
  Receive Date: 20101214
  Receipt Date: 20100218
  Transmission Date: 20110411
  Serious: No
  Sender: FDA-Public Use
  Company Number: US-ASTRAZENECA-2010SE07228

PATIENT
  Age: 872 Month
  Sex: Female
  Weight: 63.5 kg

DRUGS (3)
  1. CRESTOR [Suspect]
     Indication: BLOOD CHOLESTEROL
     Route: 048
     Dates: start: 20100101
  2. ATACAND [Concomitant]
     Indication: BLOOD PRESSURE
  3. ATENOLOL [Concomitant]
     Indication: BLOOD PRESSURE

REACTIONS (2)
  - FLATULENCE [None]
  - REFLUX OESOPHAGITIS [None]
